FAERS Safety Report 20479866 (Version 2)
Quarter: 2022Q1

REPORT INFORMATION
  Report Type: Spontaneous
  Country: AT (occurrence: AT)
  Receive Date: 20220216
  Receipt Date: 20220307
  Transmission Date: 20220423
  Serious: Yes (Hospitalization, Other)
  Sender: FDA-Public Use
  Company Number: AT-SA-SAC20220214000104

PATIENT

DRUGS (6)
  1. LIBTAYO [Suspect]
     Active Substance: CEMIPLIMAB-RWLC
     Indication: Product used for unknown indication
     Dosage: 350 MG, Q12D
     Route: 042
     Dates: start: 20211014, end: 20211125
  2. LIBTAYO [Suspect]
     Active Substance: CEMIPLIMAB-RWLC
     Dosage: UNK
     Dates: start: 20211104
  3. LIBTAYO [Suspect]
     Active Substance: CEMIPLIMAB-RWLC
     Dosage: UNK
     Dates: start: 20211125
  4. CLAVAMOX                           /02043401/ [Concomitant]
     Indication: Urinary tract infection
     Dosage: TID
  5. NOVALGIN (METAMIZOLE SODIUM) [Concomitant]
     Active Substance: METAMIZOLE SODIUM
     Indication: Pain
     Dosage: TID
  6. CHOLECALCIFEROL [Concomitant]
     Active Substance: CHOLECALCIFEROL
     Indication: Product used for unknown indication
     Dosage: WEEKLY

REACTIONS (11)
  - Hallucination [Recovered/Resolved]
  - Autoimmune hepatitis [Recovering/Resolving]
  - Red blood cell count decreased [Recovered/Resolved]
  - Hepatic enzyme increased [Recovered/Resolved]
  - Anaemia [Unknown]
  - Confusional state [Unknown]
  - Aspartate aminotransferase increased [Recovered/Resolved]
  - Alanine aminotransferase increased [Recovered/Resolved]
  - Squamous cell carcinoma [Unknown]
  - Hallucination [Unknown]
  - Autoimmune hepatitis [Unknown]

NARRATIVE: CASE EVENT DATE: 20211024
